FAERS Safety Report 7903746-3 (Version None)
Quarter: 2011Q4

REPORT INFORMATION
  Report Type: 
  Country: None (occurrence: None)
  Receive Date: 20111109
  Receipt Date: 20111103
  Transmission Date: 20120403
  Serious: Yes (Life-Threatening, Hospitalization)
  Sender: FDA-Public Use
  Company Number: PHHY2011GB92554

PATIENT
  Age: 5 Hour
  Sex: Male
  Weight: 3.69 kg

DRUGS (1)
  1. CITALOPRAM [Suspect]
     Route: 063

REACTIONS (3)
  - SOMNAMBULISM [None]
  - CYANOSIS NEONATAL [None]
  - EXPOSURE DURING BREAST FEEDING [None]
